FAERS Safety Report 7637737-7 (Version None)
Quarter: 2011Q3

REPORT INFORMATION
  Report Type: 
  Country: None (occurrence: None)
  Receive Date: 20110727
  Receipt Date: 20110714
  Transmission Date: 20111222
  Serious: Yes (Other)
  Sender: FDA-Public Use
  Company Number: AU-AMGEN-AUSSP2011030288

PATIENT

DRUGS (1)
  1. ARANESP [Suspect]
     Indication: RENAL FAILURE CHRONIC
     Dosage: 80 A?G, UNK

REACTIONS (3)
  - GENERAL PHYSICAL HEALTH DETERIORATION [None]
  - APLASIA PURE RED CELL [None]
  - DRUG INEFFECTIVE [None]
